FAERS Safety Report 8998613 (Version 1)
Quarter: 2013Q1

REPORT INFORMATION
  Report Type: Spontaneous
  Country: US (occurrence: US)
  Receive Date: 20130103
  Receipt Date: 20130103
  Transmission Date: 20140127
  Serious: No
  Sender: FDA-Public Use
  Company Number: US-009507513-1212USA006591

PATIENT
  Age: 24 Year
  Sex: Female
  Weight: 59.86 kg

DRUGS (3)
  1. IMPLANON [Suspect]
     Indication: CONTRACEPTION
     Dosage: UNK
     Route: 059
     Dates: start: 20090223, end: 201201
  2. IMPLANON [Suspect]
     Dosage: UNK
     Route: 059
     Dates: start: 201201
  3. VENLAFAXINE HYDROCHLORIDE [Concomitant]

REACTIONS (5)
  - Polymenorrhoea [Unknown]
  - Menorrhagia [Unknown]
  - Device difficult to use [Unknown]
  - Implant site fibrosis [Unknown]
  - Complication of device insertion [Unknown]
